FAERS Safety Report 20926776 (Version 1)
Quarter: 2022Q2

REPORT INFORMATION
  Report Type: Spontaneous
  Country: BR (occurrence: BR)
  Receive Date: 20220607
  Receipt Date: 20220607
  Transmission Date: 20220721
  Serious: Yes (Other)
  Sender: FDA-Public Use
  Company Number: BR-TAKEDA-2022TUS037852

PATIENT

DRUGS (1)
  1. DEXILANT [Suspect]
     Active Substance: DEXLANSOPRAZOLE
     Indication: Oesophagitis
     Dosage: 30 MILLIGRAM, QD
     Route: 065

REACTIONS (4)
  - Dental operation [Unknown]
  - Off label use [Unknown]
  - Faeces soft [Unknown]
  - Abdominal pain [Unknown]
